FAERS Safety Report 6765765-2 (Version None)
Quarter: 2010Q2

REPORT INFORMATION
  Report Type: 
  Country: None (occurrence: None)
  Receive Date: 20100610
  Receipt Date: 20100610
  Transmission Date: 20101027
  Serious: Yes (Other)
  Sender: FDA-Public Use
  Company Number: None

PATIENT
  Age: 47 Year
  Sex: Male
  Weight: 102.0593 kg

DRUGS (2)
  1. AMLODIPINE BESYLATE [Suspect]
     Indication: CHEST PAIN
     Dosage: 5 MG ONE DAILY
     Dates: start: 20100325, end: 20100428
  2. AMLODIPINE BESYLATE [Suspect]
     Indication: HYPERTENSION
     Dosage: 5 MG ONE DAILY
     Dates: start: 20100325, end: 20100428

REACTIONS (3)
  - ABASIA [None]
  - MUSCLE SPASMS [None]
  - OEDEMA PERIPHERAL [None]
